FAERS Safety Report 10056647 (Version 5)
Quarter: 2014Q3

REPORT INFORMATION
  Report Type: Spontaneous
  Country: JP (occurrence: JP)
  Receive Date: 20140403
  Receipt Date: 20140908
  Transmission Date: 20150326
  Serious: Yes (Life-Threatening, Hospitalization)
  Sender: FDA-Public Use
  Company Number: JP-PFIZER INC-2014049972

PATIENT
  Age: 67 Year
  Sex: Male

DRUGS (3)
  1. INLYTA [Suspect]
     Active Substance: AXITINIB
     Dosage: 20 MG/DAY
     Route: 048
     Dates: start: 20140208
  2. INLYTA [Suspect]
     Active Substance: AXITINIB
     Indication: METASTATIC RENAL CELL CARCINOMA
     Dosage: 5 MG, 2X/DAY
     Route: 048
     Dates: start: 20131028
  3. INLYTA [Suspect]
     Active Substance: AXITINIB
     Dosage: 16 MG, DAILY
     Route: 048
     Dates: start: 20140131

REACTIONS (2)
  - Interstitial lung disease [Recovering/Resolving]
  - Pulmonary cavitation [Recovering/Resolving]

NARRATIVE: CASE EVENT DATE: 20140115
